FAERS Safety Report 8865766 (Version 1)
Quarter: 2012Q4

REPORT INFORMATION
  Report Type: 
  Country: US (occurrence: US)
  Receive Date: 20121024
  Receipt Date: 20121024
  Transmission Date: 20130627
  Serious: No
  Sender: FDA-Public Use
  Company Number: US-AMGEN-USASP2011064782

PATIENT
  Age: 44 Year
  Sex: Female

DRUGS (2)
  1. ENBREL [Suspect]
     Indication: RHEUMATOID ARTHRITIS
     Dosage: 50 mg, qwk
     Dates: start: 20090504, end: 201105
  2. METHOTREXATE [Concomitant]
     Dosage: UNK

REACTIONS (4)
  - Surgery [Not Recovered/Not Resolved]
  - Anal fistula [Recovered/Resolved]
  - Musculoskeletal pain [Recovered/Resolved]
  - Drug effect incomplete [Recovered/Resolved]
